FAERS Safety Report 23458907 (Version 1)
Quarter: 2024Q1

REPORT INFORMATION
  Report Type: Spontaneous
  Country: US (occurrence: US)
  Receive Date: 20240131
  Receipt Date: 20240131
  Transmission Date: 20240410
  Serious: No
  Sender: FDA-Public Use
  Company Number: US-NAARI PTE LIMITED-2023NP000028

PATIENT
  Sex: Female

DRUGS (1)
  1. NORETHINDRONE [Suspect]
     Active Substance: NORETHINDRONE
     Indication: Hormonal contraception
     Dosage: 0.35 MILLIGRAM
     Route: 065

REACTIONS (1)
  - Erythema nodosum [Unknown]
